FAERS Safety Report 18195636 (Version 2)
Quarter: 2020Q3

REPORT INFORMATION
  Report Type: Spontaneous
  Country: US (occurrence: US)
  Receive Date: 20200825
  Receipt Date: 20200904
  Transmission Date: 20201103
  Serious: Yes (Other)
  Sender: FDA-Public Use
  Company Number: US-GILEAD-2020-0491801

PATIENT
  Age: 79 Year
  Sex: Male
  Weight: 83.9 kg

DRUGS (33)
  1. LASIX [Concomitant]
     Active Substance: FUROSEMIDE
     Dosage: UNK
     Route: 065
     Dates: start: 20200808, end: 20200808
  2. LOPRESSOR [Concomitant]
     Active Substance: METOPROLOL TARTRATE
     Dosage: UNK
     Route: 065
     Dates: start: 20200818
  3. ENZALUTAMIDE [Concomitant]
     Active Substance: ENZALUTAMIDE
  4. POLYETHYLENE GLYCOL 3350. [Concomitant]
     Active Substance: POLYETHYLENE GLYCOL 3350
  5. ZOSYN [Concomitant]
     Active Substance: PIPERACILLIN SODIUM\TAZOBACTAM SODIUM
     Dosage: UNK
     Route: 065
     Dates: start: 20200813, end: 20200816
  6. INSULIN REGULAR HM [Concomitant]
     Active Substance: INSULIN NOS
     Indication: HYPERGLYCAEMIA
     Dosage: UNK
     Dates: start: 20200810, end: 20200823
  7. SODIUM PHOSPHATE [Concomitant]
     Active Substance: SODIUM PHOSPHATE
  8. REMDESIVIR. [Suspect]
     Active Substance: REMDESIVIR
     Indication: COVID-19
     Dosage: 200 MG, ONCE
     Route: 042
     Dates: start: 20200804, end: 20200804
  9. HUMULIN R [Concomitant]
     Active Substance: INSULIN HUMAN
     Dosage: UNK
     Route: 065
     Dates: start: 20200810
  10. FLOMAX [MORNIFLUMATE] [Concomitant]
     Active Substance: MORNIFLUMATE
     Dosage: UNK
     Route: 065
     Dates: start: 20200818
  11. DONEPEZIL. [Concomitant]
     Active Substance: DONEPEZIL
     Dosage: UNK
     Dates: start: 20200817
  12. TAMSULOSIN [Concomitant]
     Active Substance: TAMSULOSIN
  13. DECADRON [Concomitant]
     Active Substance: DEXAMETHASONE
     Dosage: UNK
     Route: 065
     Dates: start: 20200805, end: 20200809
  14. LOPRESSOR [Concomitant]
     Active Substance: METOPROLOL TARTRATE
     Dosage: UNK
     Route: 065
     Dates: start: 20200809, end: 20200811
  15. KEPPRA [Concomitant]
     Active Substance: LEVETIRACETAM
     Dosage: UNK
     Dates: start: 20200818, end: 20200826
  16. MAGNESIUM SULFATE. [Concomitant]
     Active Substance: MAGNESIUM SULFATE
     Dosage: UNK
     Route: 065
     Dates: start: 20200807, end: 20200810
  17. KLOR?CON [Concomitant]
     Active Substance: POTASSIUM CHLORIDE
     Dosage: UNK
     Dates: start: 20200804
  18. POTASSIUM CHLORIDE. [Concomitant]
     Active Substance: POTASSIUM CHLORIDE
  19. REMDESIVIR. [Suspect]
     Active Substance: REMDESIVIR
     Dosage: 100 MG, QD
     Route: 042
     Dates: start: 20200805, end: 20200818
  20. KEPPRA [Concomitant]
     Active Substance: LEVETIRACETAM
     Dosage: UNK
     Route: 065
     Dates: start: 20200804, end: 20200807
  21. LOPRESSOR [Concomitant]
     Active Substance: METOPROLOL TARTRATE
     Dosage: UNK
     Dates: start: 20200813, end: 20200818
  22. HYDROMET [HOMATROPINE METHYLBROMIDE;HYDROCODONE BITARTRATE] [Concomitant]
     Dosage: UNK
     Route: 065
     Dates: start: 20200813, end: 20200813
  23. ATORVASTATIN [Concomitant]
     Active Substance: ATORVASTATIN
  24. DEXTROSE 5% [Concomitant]
     Active Substance: DEXTROSE
     Dosage: UNK
     Dates: start: 20200817
  25. NACL [Concomitant]
     Active Substance: SODIUM CHLORIDE
  26. ACETAMINOPHEN. [Concomitant]
     Active Substance: ACETAMINOPHEN
     Dosage: UNK
     Route: 065
     Dates: start: 20200813
  27. LACTATED RINGERS SOLUTION [Concomitant]
     Active Substance: CALCIUM CHLORIDE\POTASSIUM CHLORIDE\SODIUM CHLORIDE\SODIUM LACTATE
     Dosage: UNK
     Route: 065
     Dates: start: 20200805, end: 20200805
  28. HYDROCODONE/HOMATROPINE [Concomitant]
     Active Substance: HOMATROPINE METHYLBROMIDE\HYDROCODONE BITARTRATE
     Indication: PAIN
  29. DECADRON [Concomitant]
     Active Substance: DEXAMETHASONE
     Dosage: UNK
     Dates: start: 20200813, end: 20200821
  30. HEPARIN [Concomitant]
     Active Substance: HEPARIN SODIUM
     Dosage: UNK
     Route: 065
     Dates: start: 20200807
  31. COLACE [Concomitant]
     Active Substance: DOCUSATE SODIUM
     Dosage: UNK
     Route: 065
     Dates: start: 20200805
  32. PANTOPRAZOLE [Concomitant]
     Active Substance: PANTOPRAZOLE
     Dosage: UNK
     Dates: start: 20200727, end: 20200826
  33. PIPERACILLIN TAZOBACTAM PA [Concomitant]
     Active Substance: PIPERACILLIN SODIUM\TAZOBACTAM SODIUM

REACTIONS (4)
  - Incorrect product administration duration [Unknown]
  - Alanine aminotransferase increased [Recovered/Resolved]
  - Blood albumin decreased [Unknown]
  - Aspartate aminotransferase increased [Recovered/Resolved]

NARRATIVE: CASE EVENT DATE: 20200814
